FAERS Safety Report 8861319 (Version 2)
Quarter: 2013Q2

REPORT INFORMATION
  Report Type: Spontaneous
  Country: US (occurrence: None)
  Receive Date: 20120426
  Receipt Date: 20120703
  Transmission Date: 20140414
  Serious: No
  Sender: FDA-Public Use
  Company Number: PHEH2012US001670

PATIENT
  Age: 37 Year
  Sex: Female
  Weight: 57.6 kg

DRUGS (14)
  1. GILENYA [Suspect]
     Indication: MULTIPLE SCLEROSIS
     Route: 048
     Dates: start: 20111130, end: 20120109
  2. BACLOFEN [Concomitant]
  3. CIPRO [Concomitant]
  4. XOPENEX (LEVOSALBUTAMOL) [Concomitant]
  5. ASMANEX [Concomitant]
  6. FLOVENT (FLUTICASONE PROPIONATE) [Concomitant]
  7. ADVIL (MEFENAMIC ACID) [Concomitant]
  8. KRILL OIL [Concomitant]
  9. CALCIUM CITRATE W/VITAMIN D NOS (CALCIUM CITRATE, VITAMIN D NOS) [Concomitant]
  10. VITAMIN E (TOCOPHEROL) [Concomitant]
  11. MOTRIN (IBUPROFEN) [Concomitant]
  12. CONCERTA (METHYLPHENIDATE HYDROCHLORIDE) [Concomitant]
  13. PYRIDIUM (PHENAZOPYRIDINE HYDROCHLORIDE) [Concomitant]
  14. MAXALT-MLT (RIZATRIPTAN BENZOATE) [Concomitant]

REACTIONS (11)
  - Arthralgia [None]
  - Nausea [None]
  - Tinnitus [None]
  - Bacterial infection [None]
  - Headache [None]
  - Back pain [None]
  - Diarrhoea [None]
  - Cough [None]
  - Alopecia [None]
  - Dyspnoea [None]
  - Influenza like illness [None]
